FAERS Safety Report 6576235-9 (Version None)
Quarter: 2010Q1

REPORT INFORMATION
  Report Type: 
  Country: None (occurrence: None)
  Receive Date: 20100209
  Receipt Date: 20100127
  Transmission Date: 20100710
  Serious: Yes (Other)
  Sender: FDA-Public Use
  Company Number: FR-BRISTOL-MYERS SQUIBB COMPANY-14967533

PATIENT
  Age: 72 Year
  Sex: Male

DRUGS (4)
  1. APROVEL TABS 150 MG [Suspect]
     Route: 048
  2. PRAVASTATIN SODIUM [Suspect]
  3. PLAVIX [Suspect]
     Dosage: PLAVIX TABS FILM COATED TIME TO ONSET:20 YEARS
     Route: 048
  4. PRAXILENE [Suspect]

REACTIONS (4)
  - FALL [None]
  - LOSS OF CONSCIOUSNESS [None]
  - MALAISE [None]
  - RIB FRACTURE [None]
